FAERS Safety Report 21944842 (Version 1)
Quarter: 2023Q1

REPORT INFORMATION
  Report Type: Spontaneous
  Country: AT (occurrence: AT)
  Receive Date: 20230202
  Receipt Date: 20230202
  Transmission Date: 20230418
  Serious: Yes (Other)
  Sender: FDA-Public Use
  Company Number: None

PATIENT
  Age: 72 Year
  Sex: Female

DRUGS (2)
  1. ARIPIPRAZOLE [Suspect]
     Active Substance: ARIPIPRAZOLE
     Indication: Euphoric mood
     Dosage: UNK
     Route: 065
     Dates: start: 20221130, end: 20221216
  2. XARELTO [Concomitant]
     Active Substance: RIVAROXABAN
     Indication: Thrombosis prophylaxis
     Dosage: UNK
     Route: 065

REACTIONS (17)
  - Arrhythmia [Recovered/Resolved]
  - Fear of death [Recovered/Resolved]
  - Peripheral swelling [Recovered/Resolved]
  - Erythema [Recovered/Resolved]
  - Sexual dysfunction [Recovered/Resolved]
  - Panic disorder [Not Recovered/Not Resolved]
  - Visual impairment [Recovered/Resolved]
  - Dyspnoea [Recovered/Resolved]
  - Muscle twitching [Recovered/Resolved]
  - Nervousness [Recovered/Resolved]
  - Restless legs syndrome [Recovered/Resolved]
  - Dysphagia [Recovered/Resolved]
  - Anxiety [Not Recovered/Not Resolved]
  - Compulsive shopping [Recovered/Resolved]
  - Agitation [Recovered/Resolved]
  - Photophobia [Recovered/Resolved]
  - Tremor [Recovered/Resolved]

NARRATIVE: CASE EVENT DATE: 20221201
